FAERS Safety Report 19959415 (Version 3)
Quarter: 2021Q4

REPORT INFORMATION
  Report Type: Spontaneous
  Country: PK (occurrence: PK)
  Receive Date: 20211015
  Receipt Date: 20211111
  Transmission Date: 20220303
  Serious: Yes (Hospitalization)
  Sender: FDA-Public Use
  Company Number: PK-NOVOPROD-855542

PATIENT
  Age: 61 Year
  Sex: Male
  Weight: 70 kg

DRUGS (5)
  1. INSULIN ASPART [Suspect]
     Active Substance: INSULIN ASPART
     Indication: Type 2 diabetes mellitus
     Dosage: 72 IU, QD (38+34 UNITS PER DAY)
     Route: 058
     Dates: start: 20210729
  2. LOWPLAT PLUS [Concomitant]
     Indication: Cardiac disorder
     Dosage: UNK
     Route: 065
  3. X PLENDED [Concomitant]
     Indication: Cardiac disorder
     Dosage: UNK
     Route: 065
  4. MEROL [CODEINE;EUCALYPTUS GLOBULUS EXTRACT;SULFOGAIACOL] [Concomitant]
     Indication: Cardiac disorder
     Dosage: UNK
     Route: 065
  5. ESMO [ESOMEPRAZOLE MAGNESIUM TRIHYDRATE] [Concomitant]
     Indication: Cardiac disorder
     Dosage: UNK
     Route: 065

REACTIONS (1)
  - COVID-19 [Recovered/Resolved]

NARRATIVE: CASE EVENT DATE: 20210806
